FAERS Safety Report 15779778 (Version 2)
Quarter: 2019Q1

REPORT INFORMATION
  Report Type: Report from Study
  Country: None (occurrence: US)
  Receive Date: 20190102
  Receipt Date: 20190103
  Transmission Date: 20190417
  Serious: Yes (Other)
  Sender: FDA-Public Use
  Company Number: US-ABBVIE-18K-163-2595825-00

PATIENT
  Age: 68 Year
  Sex: Male
  Weight: 79.45 kg

DRUGS (4)
  1. ATORVASTATIN CALCIUM. [Concomitant]
     Active Substance: ATORVASTATIN CALCIUM
     Indication: BLOOD CHOLESTEROL INCREASED
  2. HUMIRA [Suspect]
     Active Substance: ADALIMUMAB
     Indication: CROHN^S DISEASE
     Route: 058
     Dates: start: 2011, end: 20181111
  3. HUMIRA [Suspect]
     Active Substance: ADALIMUMAB
     Route: 058
     Dates: start: 20181216
  4. ASPIRIN. [Concomitant]
     Active Substance: ASPIRIN
     Indication: PROPHYLAXIS

REACTIONS (13)
  - Osteoarthritis [Not Recovered/Not Resolved]
  - Medical device implantation [Recovered/Resolved]
  - Joint swelling [Recovered/Resolved]
  - Bone erosion [Recovered/Resolved]
  - Joint dislocation [Recovered/Resolved]
  - Fluid retention [Recovered/Resolved]
  - Aortic valve incompetence [Not Recovered/Not Resolved]
  - Joint effusion [Recovered/Resolved]
  - Blood cobalt increased [Not Recovered/Not Resolved]
  - Procedural pain [Recovered/Resolved]
  - Blood chromium increased [Not Recovered/Not Resolved]
  - Heart valve incompetence [Not Recovered/Not Resolved]
  - Mass [Recovered/Resolved]

NARRATIVE: CASE EVENT DATE: 2015
